FAERS Safety Report 8554446-0 (Version None)
Quarter: 2012Q3

REPORT INFORMATION
  Report Type: 
  Country: None (occurrence: None)
  Receive Date: 20120731
  Receipt Date: 20120723
  Transmission Date: 20120928
  Serious: Yes (Hospitalization)
  Sender: FDA-Public Use
  Company Number: US-009507513-1207USA010567

PATIENT

DRUGS (12)
  1. ACETAMINOPHEN [Interacting]
     Dosage: 650 MG, PRN
     Route: 048
  2. LIDOCAINE [Concomitant]
  3. GABAPENTIN [Concomitant]
  4. LANTUS [Concomitant]
  5. WARFARIN SODIUM [Interacting]
     Dosage: 1 DF, UNK
  6. INSULIN LISPRO [Concomitant]
  7. VITAMINS (UNSPECIFIED) [Concomitant]
  8. ZOCOR [Suspect]
     Dosage: 20 MG, QD
     Route: 048
  9. OXYCODONE HCL [Concomitant]
  10. AMLODIPINE [Concomitant]
  11. CYMBALTA [Interacting]
     Dosage: 60 MG, QD
  12. METOPROLOL TARTRATE [Concomitant]

REACTIONS (9)
  - DRUG INTERACTION [None]
  - INTERNATIONAL NORMALISED RATIO DECREASED [None]
  - HEPATIC FUNCTION ABNORMAL [None]
  - ALANINE AMINOTRANSFERASE INCREASED [None]
  - ASPARTATE AMINOTRANSFERASE INCREASED [None]
  - HAEMATOCRIT DECREASED [None]
  - INTERNATIONAL NORMALISED RATIO INCREASED [None]
  - HEPATITIS [None]
  - HAEMOGLOBIN DECREASED [None]
